FAERS Safety Report 7764550-2 (Version None)
Quarter: 2011Q3

REPORT INFORMATION
  Report Type: 
  Country: None (occurrence: None)
  Receive Date: 20110921
  Receipt Date: 20110916
  Transmission Date: 20111222
  Serious: Yes (Other)
  Sender: FDA-Public Use
  Company Number: BR-PFIZER INC-2011221186

PATIENT
  Age: 67 Year
  Sex: Female
  Weight: 94 kg

DRUGS (10)
  1. ATENOLOL [Concomitant]
     Indication: ARTERIAL OCCLUSIVE DISEASE
     Dosage: 50 MG, 1X/DAY
     Dates: start: 20020101
  2. DINATON [Concomitant]
     Indication: CARDIOVASCULAR DISORDER
     Dosage: UNK, 1X/DAY
     Dates: start: 20100101
  3. PLAKETAR [Concomitant]
     Indication: ARTERIAL OCCLUSIVE DISEASE
     Dosage: 250 MG, 1X/DAY
     Dates: start: 20080101
  4. VYTORIN [Concomitant]
     Indication: BLOOD CHOLESTEROL INCREASED
     Dosage: [EZETIMIBE 10MG]/[SIMVASTATIN 20MG], 1X/DAY
  5. VARENICLINE TARTRATE [Suspect]
     Dosage: 0.5 MG, 2X/DAY
     Route: 048
     Dates: start: 20110901
  6. DILTIAZEM HYDROCHLORIDE [Concomitant]
     Indication: ARTERIAL OCCLUSIVE DISEASE
     Dosage: 30 MG, 2X/DAY
     Dates: start: 20020101
  7. CORUS [Concomitant]
     Indication: HYPERTENSION
     Dosage: 25 MG (HALF OF A 50MG TABLET), 1X/DAY
  8. SYNTHROID [Concomitant]
     Indication: THYROID ATROPHY
     Dosage: 100 MG, 1X/DAY
  9. LOVAZA [Concomitant]
     Indication: BLOOD TRIGLYCERIDES
     Dosage: UNK
     Dates: start: 20100301
  10. VARENICLINE TARTRATE [Suspect]
     Indication: TOBACCO USER
     Dosage: 0.5 MG, 1X/DAY
     Route: 048
     Dates: start: 20110914, end: 20110901

REACTIONS (2)
  - FLUID RETENTION [None]
  - OLIGURIA [None]
